FAERS Safety Report 4412795-1 (Version None)
Quarter: 2004Q3

REPORT INFORMATION
  Report Type: 
  Country: None (occurrence: None)
  Receive Date: 20040730
  Receipt Date: 20040730
  Transmission Date: 20050211
  Serious: Yes (Hospitalization)
  Sender: FDA-Public Use
  Company Number: None

PATIENT
  Age: 60 Year
  Sex: Female
  Weight: 114.3065 kg

DRUGS (15)
  1. TEQUIN [Suspect]
     Indication: INFECTION
     Dosage: 400 MG PO ONCE DAILY
     Route: 048
     Dates: start: 20040713
  2. TEQUIN [Suspect]
     Indication: SKIN INFECTION
     Dosage: 400 MG PO ONCE DAILY
     Route: 048
     Dates: start: 20040713
  3. TEQUIN [Suspect]
     Indication: INFECTION
     Dosage: 400 MG PO ONCE DAILY
     Route: 048
     Dates: start: 20040714
  4. TEQUIN [Suspect]
     Indication: SKIN INFECTION
     Dosage: 400 MG PO ONCE DAILY
     Route: 048
     Dates: start: 20040714
  5. TEQUIN [Suspect]
  6. PREVACID [Concomitant]
  7. PAXIL [Concomitant]
  8. PLAVIX [Concomitant]
  9. ALTACE [Concomitant]
  10. COREG [Concomitant]
  11. TRICOR [Concomitant]
  12. ASPIRIN [Concomitant]
  13. AVANDIA [Concomitant]
  14. GLYBURIDE [Concomitant]
  15. LIPITOR [Concomitant]

REACTIONS (5)
  - ASTHENIA [None]
  - CHILLS [None]
  - DEPRESSED LEVEL OF CONSCIOUSNESS [None]
  - DISORIENTATION [None]
  - HYPOGLYCAEMIA [None]
